FAERS Safety Report 23475036 (Version 1)
Quarter: 2024Q1

REPORT INFORMATION
  Report Type: Report from Study
  Country: US (occurrence: US)
  Receive Date: 20240204
  Receipt Date: 20240204
  Transmission Date: 20240410
  Serious: Yes (Other)
  Sender: FDA-Public Use
  Company Number: US-EXELIXIS-CABO-23069584

PATIENT
  Sex: Female

DRUGS (6)
  1. CABOMETYX [Suspect]
     Active Substance: CABOZANTINIB S-MALATE
     Indication: Adrenal neoplasm
     Dosage: 60 MG, QD
     Route: 048
     Dates: start: 202306
  2. KEYTRUDA [Concomitant]
     Active Substance: PEMBROLIZUMAB
  3. FLUDROCORTISONE [Concomitant]
     Active Substance: FLUDROCORTISONE
  4. CETIRIZINE [Concomitant]
     Active Substance: CETIRIZINE HYDROCHLORIDE
  5. LEVOTHYROXINE [Concomitant]
     Active Substance: LEVOTHYROXINE\LEVOTHYROXINE SODIUM
  6. DOCUSATE SODIUM [Concomitant]
     Active Substance: DOCUSATE SODIUM

REACTIONS (2)
  - Malignant neoplasm progression [Unknown]
  - Off label use [Unknown]
